FAERS Safety Report 7448941-5 (Version None)
Quarter: 2011Q2

REPORT INFORMATION
  Report Type: 
  Country: None (occurrence: None)
  Receive Date: 20110429
  Receipt Date: 20100901
  Transmission Date: 20111010
  Serious: No
  Sender: FDA-Public Use
  Company Number: US-ASTRAZENECA-2010SE41168

PATIENT
  Age: 68 Year
  Sex: Female
  Weight: 81.6 kg

DRUGS (3)
  1. VITAMINS [Concomitant]
  2. NEXIUM [Suspect]
     Indication: GASTRITIS EROSIVE
     Route: 048
     Dates: start: 20100601
  3. METFORMIN [Concomitant]

REACTIONS (3)
  - DYSGEUSIA [None]
  - TINNITUS [None]
  - CELLULITIS [None]
